FAERS Safety Report 11089344 (Version 1)
Quarter: 2015Q2

REPORT INFORMATION
  Report Type: Report from Study
  Country: US (occurrence: US)
  Receive Date: 20150505
  Receipt Date: 20150505
  Transmission Date: 20150821
  Serious: Yes (Other)
  Sender: FDA-Public Use
  Company Number: US-BEH-2015050696

PATIENT
  Age: 45 Year
  Sex: Male

DRUGS (1)
  1. HIZENTRA [Suspect]
     Active Substance: HUMAN IMMUNOGLOBULIN G
     Indication: PRODUCT USED FOR UNKNOWN INDICATION

REACTIONS (4)
  - Carpal tunnel decompression [Unknown]
  - Rotator cuff syndrome [Unknown]
  - Road traffic accident [Unknown]
  - Accident at work [Unknown]

NARRATIVE: CASE EVENT DATE: 20150330
